FAERS Safety Report 10676044 (Version 3)
Quarter: 2015Q1

REPORT INFORMATION
  Report Type: Report from Study
  Country: TH (occurrence: TH)
  Receive Date: 20141225
  Receipt Date: 20150109
  Transmission Date: 20150720
  Serious: Yes (Death, Life-Threatening, Hospitalization, Other)
  Sender: FDA-Public Use
  Company Number: PHHY2012TH060990

PATIENT
  Age: 49 Year
  Sex: Female
  Weight: 49 kg

DRUGS (2)
  1. GLIVEC [Suspect]
     Active Substance: IMATINIB MESYLATE
     Indication: GASTROINTESTINAL STROMAL TUMOUR
     Dosage: 400 MG
     Route: 048
     Dates: start: 20120711
  2. GLIVEC [Suspect]
     Active Substance: IMATINIB MESYLATE
     Dosage: 800 MG
     Route: 048

REACTIONS (5)
  - Gastrointestinal stromal tumour [Unknown]
  - Dyspnoea [Fatal]
  - Malaise [Unknown]
  - Abdominal discomfort [Not Recovered/Not Resolved]
  - Malignant neoplasm progression [Unknown]

NARRATIVE: CASE EVENT DATE: 20141022
